FAERS Safety Report 5489004-8 (Version None)
Quarter: 2007Q4

REPORT INFORMATION
  Report Type: 
  Country: None (occurrence: None)
  Receive Date: 20071005
  Receipt Date: 20070921
  Transmission Date: 20080405
  Serious: Yes (Death, Hospitalization)
  Sender: FDA-Public Use
  Company Number: THYM-11530

PATIENT
  Age: 62 Year
  Sex: Female
  Weight: 54 kg

DRUGS (27)
  1. THYMOGLOBULIN [Suspect]
     Indication: LIVER TRANSPLANT
     Dosage: 1.5 MG/KG QOD IV
     Route: 042
     Dates: start: 20060715, end: 20060719
  2. PROGRAF [Suspect]
     Indication: IMMUNOSUPPRESSION
     Dates: start: 20060715, end: 20060922
  3. METHYLPREDNISOLONE [Concomitant]
  4. ULCAR. MFR: HOUDE [Concomitant]
  5. ACUPAN. MFR: CARNEGIE MEDICAL [Concomitant]
  6. UMULINE. MFR: LILLY ELI AND COMPANY [Concomitant]
  7. LEVOPHED. MFR: WINTHROP LABORATORIES [Concomitant]
  8. AUGMENTIN. MFR: SMITH KLINE BEECHAM [Concomitant]
  9. TRIFLUCAN. MFR: PFIZER LABORATORIES [Concomitant]
  10. INNEXIUM [Concomitant]
  11. CELOCURINE [Concomitant]
  12. ETOMIDATE [Concomitant]
  13. VANCOMYCIN [Concomitant]
  14. HYPNOVEL. MFR: HOFFMAN-LA ROCHE, INC. [Concomitant]
  15. MORPHINE [Concomitant]
  16. NORADRENALINE [Concomitant]
  17. VITAMIN B1/B6 [Concomitant]
  18. VITAMIN K1 [Concomitant]
  19. SOLU-MEDROL [Concomitant]
  20. ATARAX. MFR: PFIZER LABORATORIES [Concomitant]
  21. LASIX [Concomitant]
  22. CLAVENTIN. MFR: BEECHAM RESEARCH LABORATORIES [Concomitant]
  23. BACTRIM. MFR: HOFFMAN-LA ROCHE, INC. [Concomitant]
  24. LEDERFOLIN. MFR: CYANAMIDE-NOVALIS [Concomitant]
  25. VFEND [Concomitant]
  26. KAYEXALATE. MFR: WINTHROP LABORATORIES [Concomitant]
  27. DIPRIVAN. MFR: IMPERIAL CHEMICAL INDUSTRIES LIMITED [Concomitant]

REACTIONS (29)
  - ASCITES [None]
  - BRONCHOALVEOLAR LAVAGE ABNORMAL [None]
  - BRONCHOPULMONARY ASPERGILLOSIS [None]
  - CHOLESTASIS [None]
  - CONDITION AGGRAVATED [None]
  - CYTOMEGALOVIRUS INFECTION [None]
  - DRUG INTOLERANCE [None]
  - DRUG LEVEL DECREASED [None]
  - DRUG LEVEL INCREASED [None]
  - ENCEPHALOPATHY [None]
  - HAEMODIALYSIS [None]
  - HAEMOTHORAX [None]
  - JAUNDICE CHOLESTATIC [None]
  - LIVER TRANSPLANT REJECTION [None]
  - MULTI-ORGAN FAILURE [None]
  - MYOCLONUS [None]
  - NEUROLOGICAL SYMPTOM [None]
  - PERITONEAL HAEMORRHAGE [None]
  - PERITONITIS [None]
  - PLEURAL EFFUSION [None]
  - PNEUMONIA [None]
  - PNEUMONIA BACTERIAL [None]
  - POST PROCEDURAL COMPLICATION [None]
  - PSEUDOMONAS INFECTION [None]
  - RENAL FAILURE [None]
  - RESPIRATORY FAILURE [None]
  - SEPTIC SHOCK [None]
  - SHOCK [None]
  - STENOTROPHOMONAS INFECTION [None]
